FAERS Safety Report 14985353 (Version 1)
Quarter: 2018Q2

REPORT INFORMATION
  Report Type: Spontaneous
  Country: DE (occurrence: DE)
  Receive Date: 20180607
  Receipt Date: 20180607
  Transmission Date: 20180711
  Serious: Yes (Hospitalization)
  Sender: FDA-Public Use
  Company Number: DE-TEVA-2018-DE-902893

PATIENT
  Age: 69 Year
  Sex: Female

DRUGS (7)
  1. PANTOPRAZOLE [Suspect]
     Active Substance: PANTOPRAZOLE
     Dosage: 40 MILLIGRAM DAILY;
     Route: 065
  2. SIMVASTATIN. [Concomitant]
     Active Substance: SIMVASTATIN
     Dosage: 20 MILLIGRAM DAILY;
     Route: 065
  3. METAMIZOL [Concomitant]
     Active Substance: METAMIZOLE SODIUM
     Dosage: 40-40-40-40, DROPS
     Route: 065
  4. OXYGESIC [Suspect]
     Active Substance: OXYCODONE
     Dosage: 20 MILLIGRAM DAILY;
     Route: 065
  5. TRIMIPRAMINE [Suspect]
     Active Substance: TRIMIPRAMINE
     Dosage: 100 MILLIGRAM DAILY;
     Route: 065
  6. NEBILET [Suspect]
     Active Substance: NEBIVOLOL
     Dosage: 5 MILLIGRAM DAILY;
     Route: 065
  7. TAVOR [Concomitant]
     Dosage: 5 MILLIGRAM DAILY;
     Route: 065

REACTIONS (3)
  - Abdominal pain lower [Unknown]
  - Constipation [Unknown]
  - Condition aggravated [Unknown]
